FAERS Safety Report 4742029-X (Version None)
Quarter: 2005Q3

REPORT INFORMATION
  Report Type: 
  Country: None (occurrence: None)
  Receive Date: 20050727
  Receipt Date: 20041209
  Transmission Date: 20060218
  Serious: Yes (Life-Threatening, Hospitalization, Disabling)
  Sender: FDA-Public Use
  Company Number: IGH/04/10/LIT

PATIENT
  Age: 68 Year
  Sex: Female

DRUGS (3)
  1. IMMUNE GLOBULIN INTRAVENOUS (HUMAN) [Suspect]
     Indication: SEVERE ACUTE RESPIRATORY SYNDROME
     Dosage: I.V.
     Route: 042
  2. METHYLPREDNISOLONE (METHYLPREDNISOLONE) [Concomitant]
  3. LOW MOLECULAR WEIGHT HEPARIN (HEPARIN) [Concomitant]

REACTIONS (6)
  - ACUTE MYOCARDIAL INFARCTION [None]
  - CEREBRAL INFARCTION [None]
  - HYPOTENSION [None]
  - NOSOCOMIAL INFECTION [None]
  - RENAL FAILURE ACUTE [None]
  - RESPIRATORY FAILURE [None]
